FAERS Safety Report 9724962 (Version 1)
Quarter: 2013Q4

REPORT INFORMATION
  Report Type: Spontaneous
  Country: US (occurrence: US)
  Receive Date: 20131202
  Receipt Date: 20131202
  Transmission Date: 20140711
  Serious: No
  Sender: FDA-Public Use
  Company Number: US-BAXTER-2013BAX046150

PATIENT
  Sex: Female

DRUGS (2)
  1. VANCOMYCIN INJECTION, USP [Suspect]
     Indication: CLOSTRIDIUM DIFFICILE INFECTION
     Route: 065
     Dates: end: 20131008
  2. HUMIRA [Suspect]
     Indication: CROHN^S DISEASE
     Route: 058
     Dates: start: 20130425

REACTIONS (1)
  - Crohn^s disease [Unknown]
